FAERS Safety Report 9295194 (Version 1)
Quarter: 2013Q1

REPORT INFORMATION
  Report Type: Spontaneous
  Country: US (occurrence: None)
  Receive Date: 20121227
  Receipt Date: 20121227
  Transmission Date: 20140127
  Serious: No
  Sender: FDA-Public Use
  Company Number: PHEH2012US020202

PATIENT
  Age: 85 Year
  Sex: Male

DRUGS (8)
  1. AFINITOR [Suspect]
     Route: 048
     Dates: start: 20120925, end: 201210
  2. ALLOPURINOL [Concomitant]
  3. LORISTA H (LOSARTAN/HYDROCHLORIDEOTHIAZIDE) [Concomitant]
  4. AMLODIPINE (AMLODIPINE) [Concomitant]
  5. METOPROLOL (METOPROLOL) [Concomitant]
  6. PRILOSEC [Concomitant]
  7. HYDROMET (HYDROCHLOROTHIAZIDE, METHYLDOPA) [Concomitant]
  8. LORAZEPAM (LORAZEPAM) [Concomitant]

REACTIONS (2)
  - Rash [None]
  - Drug ineffective [None]
